FAERS Safety Report 8887134 (Version 1)
Quarter: 2012Q4

REPORT INFORMATION
  Report Type: 
  Country: JP (occurrence: US)
  Receive Date: 20121101
  Receipt Date: 20121101
  Transmission Date: 20130627
  Serious: Yes (Hospitalization, Other)
  Sender: FDA-Public Use
  Company Number: PHHY2012US098602

PATIENT
  Sex: Female

DRUGS (6)
  1. BACLOFEN [Suspect]
     Dosage: UNK UKN, UNK
  2. AMANTADINE [Suspect]
     Dosage: UNK UKN, UNK
  3. AMPYRA [Suspect]
     Indication: GAIT DISTURBANCE
     Dosage: 10 mg, BID
     Route: 048
     Dates: start: 2011
  4. AMPYRA [Suspect]
     Dosage: 10 mg, every 8 hrs
     Route: 048
  5. VITAMINE [Concomitant]
     Dosage: UNK UKN, UNK
  6. IRON [Concomitant]
     Dosage: UNK UKN, UNK

REACTIONS (2)
  - Ankle fracture [Recovered/Resolved]
  - Hallucination, visual [Recovered/Resolved]
